FAERS Safety Report 13611873 (Version 1)
Quarter: 2017Q2

REPORT INFORMATION
  Report Type: Spontaneous
  Country: US (occurrence: US)
  Receive Date: 20170605
  Receipt Date: 20170605
  Transmission Date: 20170830
  Serious: Yes (Other)
  Sender: FDA-Public Use
  Company Number: None

PATIENT
  Age: 65 Year
  Sex: Female

DRUGS (1)
  1. FLEXBUMIN [Suspect]
     Active Substance: ALBUMIN HUMAN
     Indication: POSTOPERATIVE CARE
     Dosage: ?          OTHER FREQUENCY:ONE TIME;?INTRAVENOUS (NOT OTHERWISE SPECIFIED) ?
     Route: 042
     Dates: start: 20170604, end: 20170604

REACTIONS (5)
  - Malaise [None]
  - Bacillus test positive [None]
  - Infusion related reaction [None]
  - Product contamination microbial [None]
  - Chills [None]

NARRATIVE: CASE EVENT DATE: 20170604
